FAERS Safety Report 20945991 (Version 1)
Quarter: 2022Q2

REPORT INFORMATION
  Report Type: Spontaneous
  Country: US (occurrence: US)
  Receive Date: 20220610
  Receipt Date: 20220610
  Transmission Date: 20220721
  Serious: No
  Sender: FDA-Public Use
  Company Number: US-BRISTOL-MYERS SQUIBB COMPANY-2022-052518

PATIENT
  Age: 65 Year
  Sex: Male

DRUGS (1)
  1. REVLIMID [Suspect]
     Active Substance: LENALIDOMIDE
     Indication: Plasma cell myeloma
     Dosage: 25 MG ONE A DAY FOR 14 DAYS AND 7 DAYS OFF
     Route: 048
     Dates: start: 20220421

REACTIONS (3)
  - Rash [Unknown]
  - Joint swelling [Unknown]
  - Off label use [Unknown]
